FAERS Safety Report 18206158 (Version 3)
Quarter: 2021Q1

REPORT INFORMATION
  Report Type: Spontaneous
  Country: US (occurrence: US)
  Receive Date: 20200828
  Receipt Date: 20210319
  Transmission Date: 20210419
  Serious: Yes (Other)
  Sender: FDA-Public Use
  Company Number: US-GILEAD-2020-0491849

PATIENT
  Sex: Male
  Weight: 115.65 kg

DRUGS (17)
  1. TRUVADA [Suspect]
     Active Substance: EMTRICITABINE\TENOFOVIR DISOPROXIL FUMARATE
     Dosage: UNK
     Route: 048
     Dates: start: 201301, end: 201901
  2. LAMIVUDINE. [Concomitant]
     Active Substance: LAMIVUDINE
  3. TRUVADA [Suspect]
     Active Substance: EMTRICITABINE\TENOFOVIR DISOPROXIL FUMARATE
     Indication: HIV INFECTION
     Dosage: UNK
     Route: 048
     Dates: start: 2013
  4. VIREAD [Suspect]
     Active Substance: TENOFOVIR DISOPROXIL FUMARATE
     Indication: HIV INFECTION
     Dosage: UNK
     Route: 048
     Dates: start: 201901
  5. NYSTATIN. [Concomitant]
     Active Substance: NYSTATIN
  6. RANITIDINE HCL [Concomitant]
     Active Substance: RANITIDINE HYDROCHLORIDE
  7. CYANOCOBALAMIN. [Concomitant]
     Active Substance: CYANOCOBALAMIN
  8. LASIX [Concomitant]
     Active Substance: FUROSEMIDE
  9. METFORMIN [Concomitant]
     Active Substance: METFORMIN HYDROCHLORIDE
  10. OXYCODONE [Concomitant]
     Active Substance: OXYCODONE
  11. ALLOPURINOL. [Concomitant]
     Active Substance: ALLOPURINOL
  12. TACROLIMUS. [Concomitant]
     Active Substance: TACROLIMUS
  13. MAGNESIUM OXIDE. [Concomitant]
     Active Substance: MAGNESIUM OXIDE
  14. RIFAXIMIN. [Concomitant]
     Active Substance: RIFAXIMIN
  15. ROSUVASTATIN. [Concomitant]
     Active Substance: ROSUVASTATIN
  16. ERGOCALCIFEROL. [Concomitant]
     Active Substance: ERGOCALCIFEROL
  17. TYLENOL [Concomitant]
     Active Substance: ACETAMINOPHEN

REACTIONS (7)
  - Chronic kidney disease [Not Recovered/Not Resolved]
  - Renal impairment [Unknown]
  - Proteinuria [Unknown]
  - Pain [Unknown]
  - Anxiety [Unknown]
  - Emotional distress [Unknown]
  - Anhedonia [Unknown]

NARRATIVE: CASE EVENT DATE: 2018
